FAERS Safety Report 23352626 (Version 1)
Quarter: 2023Q4

REPORT INFORMATION
  Report Type: Spontaneous
  Country: JP (occurrence: JP)
  Receive Date: 20231230
  Receipt Date: 20231230
  Transmission Date: 20240110
  Serious: Yes (Other)
  Sender: FDA-Public Use
  Company Number: JP-UNITED THERAPEUTICS-UNT-2023-037145

PATIENT
  Age: 24 Month
  Sex: Male

DRUGS (4)
  1. UNITUXIN [Suspect]
     Active Substance: DINUTUXIMAB
     Indication: Product used for unknown indication
     Dosage: UNK, CYCLICAL
     Route: 041
  2. TECELEUKIN [Suspect]
     Active Substance: TECELEUKIN
     Indication: Product used for unknown indication
     Dosage: UNK, CYCLICAL (CYCLE 1)
     Route: 065
  3. TECELEUKIN [Suspect]
     Active Substance: TECELEUKIN
     Dosage: UNK, CYCLICAL (CYCLE 2)
     Route: 065
     Dates: start: 20231120
  4. GRANULOCYTE COLONY-STIMULATING FACTOR NOS [Concomitant]
     Active Substance: GRANULOCYTE COLONY-STIMULATING FACTOR NOS
     Indication: Product used for unknown indication
     Dosage: UNK
     Route: 065
     Dates: start: 20231028

REACTIONS (2)
  - Cardiac dysfunction [Recovering/Resolving]
  - Eosinophil count increased [Recovering/Resolving]

NARRATIVE: CASE EVENT DATE: 20231204
